FAERS Safety Report 9994904 (Version 1)
Quarter: 2014Q1

REPORT INFORMATION
  Report Type: Spontaneous
  Country: US (occurrence: None)
  Receive Date: 20140307
  Receipt Date: 20140307
  Transmission Date: 20141002
  Serious: Yes (Life-Threatening, Other)
  Sender: FDA-Public Use
  Company Number: None

PATIENT
  Age: 43 Year
  Sex: Female
  Weight: 64.86 kg

DRUGS (1)
  1. LAMICTAL [Suspect]
     Indication: BIPOLAR DISORDER
     Dosage: 175  ONCE DAILY TAKEN BY MOUTH
     Route: 048
     Dates: start: 20131203, end: 20140306

REACTIONS (8)
  - Costochondritis [None]
  - Fibromyalgia [None]
  - Drug hypersensitivity [None]
  - Pain [None]
  - Chest pain [None]
  - Spinal pain [None]
  - Musculoskeletal pain [None]
  - Pain [None]
